FAERS Safety Report 6329797-0 (Version None)
Quarter: 2009Q3

REPORT INFORMATION
  Report Type: 
  Country: None (occurrence: None)
  Receive Date: 20090826
  Receipt Date: 20090821
  Transmission Date: 20100115
  Serious: Yes (Hospitalization)
  Sender: FDA-Public Use
  Company Number: PHHY2009IE35322

PATIENT
  Sex: Male
  Weight: 107 kg

DRUGS (1)
  1. RASILEZ [Suspect]
     Indication: HYPERTENSION
     Dosage: 150 MG
     Dates: start: 20081024

REACTIONS (6)
  - ANGINA PECTORIS [None]
  - BLOOD CREATININE INCREASED [None]
  - BLOOD POTASSIUM INCREASED [None]
  - CHEST DISCOMFORT [None]
  - GLYCOSYLATED HAEMOGLOBIN INCREASED [None]
  - STENT PLACEMENT [None]
